FAERS Safety Report 7373823-7 (Version None)
Quarter: 2011Q1

REPORT INFORMATION
  Report Type: 
  Country: None (occurrence: None)
  Receive Date: 20110325
  Receipt Date: 20110317
  Transmission Date: 20110831
  Serious: Yes (Hospitalization)
  Sender: FDA-Public Use
  Company Number: US-PFIZER INC-2011061546

PATIENT

DRUGS (2)
  1. REMERON [Suspect]
  2. PRISTIQ [Suspect]
     Dosage: UNK

REACTIONS (2)
  - PLATELET COUNT DECREASED [None]
  - SUICIDAL BEHAVIOUR [None]
